FAERS Safety Report 9097271 (Version 2)
Quarter: 2013Q3

REPORT INFORMATION
  Report Type: Spontaneous
  Country: JP (occurrence: JP)
  Receive Date: 20130212
  Receipt Date: 20130812
  Transmission Date: 20140515
  Serious: Yes (Hospitalization)
  Sender: FDA-Public Use
  Company Number: JP-CUBIST PHARMACEUTICAL, INC.-2013CBST000043

PATIENT
  Age: 76 Year
  Sex: Male
  Weight: 52 kg

DRUGS (13)
  1. CUBICIN [Suspect]
     Indication: STAPHYLOCOCCAL INFECTION
     Dosage: 350 MG, QD
     Route: 041
     Dates: start: 20121110, end: 20121118
  2. MEROPEN [Concomitant]
     Indication: PRODUCT USED FOR UNKNOWN INDICATION
     Dosage: 1.5 G, QD
     Route: 041
     Dates: start: 20121106, end: 20121107
  3. VANCOMYCIN [Concomitant]
     Indication: PRODUCT USED FOR UNKNOWN INDICATION
     Dosage: 1.5 G, QD
     Route: 051
     Dates: start: 20121107, end: 20121107
  4. VANCOMYCIN [Concomitant]
     Dosage: 1 G, QD
     Route: 051
     Dates: start: 20121108
  5. FOSMICIN [Concomitant]
     Indication: PRODUCT USED FOR UNKNOWN INDICATION
     Dosage: 2 G, QD
     Route: 041
     Dates: start: 20121106, end: 20121106
  6. FOSMICIN [Concomitant]
     Dosage: 3 G, QD
     Route: 041
     Dates: start: 20121107, end: 20121107
  7. FOSMICIN [Concomitant]
     Dosage: 4 G, QD
     Route: 041
     Dates: start: 20121108, end: 20121115
  8. PIOGLITAZONE [Concomitant]
     Indication: PRODUCT USED FOR UNKNOWN INDICATION
     Dosage: 30 MG, QD
     Route: 048
     Dates: end: 20121126
  9. AMARYL [Concomitant]
     Indication: PRODUCT USED FOR UNKNOWN INDICATION
     Dosage: 4 MG, QD
     Route: 048
     Dates: end: 20121126
  10. BASEN [Concomitant]
     Indication: PRODUCT USED FOR UNKNOWN INDICATION
     Dosage: 0.9 MG, QD
     Route: 048
     Dates: end: 20121126
  11. METGLUCO [Concomitant]
     Indication: PRODUCT USED FOR UNKNOWN INDICATION
     Dosage: 400 MG, QD
     Route: 048
     Dates: start: 20121126
  12. ATELEC [Concomitant]
     Indication: PRODUCT USED FOR UNKNOWN INDICATION
     Dosage: 20 MG, QD
     Route: 048
  13. UNSPECIFIED INGREDIENTS [Suspect]

REACTIONS (2)
  - Hepatic function abnormal [Recovered/Resolved]
  - Blood creatine phosphokinase increased [Unknown]
